FAERS Safety Report 9104640 (Version 1)
Quarter: 2013Q1

REPORT INFORMATION
  Report Type: Spontaneous
  Country: US (occurrence: US)
  Receive Date: 20130219
  Receipt Date: 20130219
  Transmission Date: 20140127
  Serious: No
  Sender: FDA-Public Use
  Company Number: US-009507513-2011SP043993

PATIENT
  Sex: Female
  Weight: 56.7 kg

DRUGS (1)
  1. IMPLANON [Suspect]
     Indication: CONTRACEPTION
     Dosage: 1 DF, UNK
     Dates: start: 200906

REACTIONS (5)
  - Implant site bruising [Not Recovered/Not Resolved]
  - Menometrorrhagia [Not Recovered/Not Resolved]
  - Medical device complication [Unknown]
  - Incorrect drug administration duration [Unknown]
  - Device difficult to use [Unknown]
